FAERS Safety Report 23408679 (Version 1)
Quarter: 2024Q1

REPORT INFORMATION
  Report Type: Report from Study
  Country: US (occurrence: None)
  Receive Date: 20240117
  Receipt Date: 20240117
  Transmission Date: 20240410
  Serious: Yes (Other)
  Sender: FDA-Public Use
  Company Number: 2024A007555

PATIENT
  Sex: Male

DRUGS (1)
  1. CALQUENCE [Suspect]
     Active Substance: ACALABRUTINIB
     Indication: Chronic lymphocytic leukaemia
     Route: 048
     Dates: start: 20220916

REACTIONS (14)
  - Blood pressure fluctuation [Unknown]
  - Blood pressure increased [Unknown]
  - Loss of consciousness [Unknown]
  - Blood pressure decreased [Unknown]
  - Fall [Unknown]
  - Hypersomnia [Unknown]
  - Hypothyroidism [Unknown]
  - Adrenal disorder [Unknown]
  - Memory impairment [Unknown]
  - Diabetes mellitus [Unknown]
  - Renal disorder [Unknown]
  - Abdominal discomfort [Unknown]
  - Fatigue [Unknown]
  - Arthralgia [Unknown]
